FAERS Safety Report 9060681 (Version 1)
Quarter: 2013Q1

REPORT INFORMATION
  Report Type: Spontaneous
  Country: US (occurrence: US)
  Receive Date: 20130204
  Receipt Date: 20130204
  Transmission Date: 20140127
  Serious: Yes (Hospitalization, Other)
  Sender: FDA-Public Use
  Company Number: US-ASTRAZENECA-2013SE05759

PATIENT
  Age: 62 Year
  Sex: Male
  Weight: 127 kg

DRUGS (2)
  1. CRESTOR [Suspect]
     Indication: BLOOD CHOLESTEROL INCREASED
     Route: 048
     Dates: start: 2010, end: 201101
  2. MEDICINES [Concomitant]

REACTIONS (7)
  - Cerebral haemorrhage [Unknown]
  - Blood creatine phosphokinase increased [Unknown]
  - Muscular weakness [Unknown]
  - Myalgia [Unknown]
  - Fall [Unknown]
  - Myositis [Unknown]
  - Cardiac disorder [Unknown]
